FAERS Safety Report 25252733 (Version 3)
Quarter: 2025Q4

REPORT INFORMATION
  Report Type: Spontaneous
  Country: US (occurrence: US)
  Receive Date: 20250429
  Receipt Date: 20251121
  Transmission Date: 20260118
  Serious: No
  Sender: TRAVERE THERAPEUTICS
  Company Number: US-TRAVERE-2025TVT00460

PATIENT
  Age: 48 Year
  Sex: Male

DRUGS (3)
  1. FILSPARI [Suspect]
     Active Substance: SPARSENTAN
     Indication: IgA nephropathy
     Dosage: LOT NUMBER: 1979026, EXPIRY DATE: 31-AUG-2027
     Route: 048
     Dates: start: 20241017
  2. TARPEYO [Concomitant]
     Active Substance: BUDESONIDE
  3. ALLOPURINOL [Concomitant]
     Active Substance: ALLOPURINOL

REACTIONS (6)
  - Neck pain [None]
  - Muscle spasms [None]
  - Oedema peripheral [None]
  - Dizziness [None]
  - Blood pressure decreased [None]
  - Off label use [Unknown]

NARRATIVE: CASE EVENT DATE: 20250301
